FAERS Safety Report 7643383-1 (Version None)
Quarter: 2011Q3

REPORT INFORMATION
  Report Type: 
  Country: None (occurrence: None)
  Receive Date: 20110729
  Receipt Date: 20110721
  Transmission Date: 20111222
  Serious: Yes (Other)
  Sender: FDA-Public Use
  Company Number: US-BAYER-2010-008028

PATIENT
  Age: 24 Year
  Sex: Female
  Weight: 78 kg

DRUGS (4)
  1. YAZ [Suspect]
     Dosage: UNK
     Dates: start: 20080101
  2. YAZ [Suspect]
     Indication: ORAL CONTRACEPTION
     Dosage: UNK
     Route: 048
     Dates: start: 20030101, end: 20091201
  3. YAZ [Suspect]
     Dosage: UNK
     Dates: start: 20000101, end: 20030101
  4. YAZ [Suspect]
     Dosage: UNK
     Dates: start: 20060101

REACTIONS (4)
  - PAIN [None]
  - CHOLELITHIASIS [None]
  - CHOLECYSTITIS CHRONIC [None]
  - GALLBLADDER DISORDER [None]
